FAERS Safety Report 5413389-1 (Version None)
Quarter: 2007Q3

REPORT INFORMATION
  Report Type: 
  Country: None (occurrence: None)
  Receive Date: 20070814
  Receipt Date: 20070803
  Transmission Date: 20080115
  Serious: Yes (Hospitalization)
  Sender: FDA-Public Use
  Company Number: JP-JNJFOC-20070706518

PATIENT
  Sex: Female

DRUGS (6)
  1. LEVOFLOXACIN [Suspect]
     Indication: INTRAUTERINE INFECTION
     Route: 048
  2. LAC B [Concomitant]
     Route: 065
  3. SESDEN [Concomitant]
     Route: 065
  4. STROCAIN [Concomitant]
     Route: 065
  5. MARZULENE [Concomitant]
     Route: 065
  6. VOLTAREN [Concomitant]
     Indication: ABDOMINAL PAIN
     Route: 065

REACTIONS (3)
  - LIVER DISORDER [None]
  - MALAISE [None]
  - NAUSEA [None]
